FAERS Safety Report 23805984 (Version 1)
Quarter: 2024Q2

REPORT INFORMATION
  Report Type: Other
  Country: GB (occurrence: GB)
  Receive Date: 20240502
  Receipt Date: 20240502
  Transmission Date: 20240715
  Serious: Yes (Other)
  Sender: FDA-Public Use
  Company Number: GB-LAURUS LABS LIMITED-2024LAU000036

PATIENT
  Age: 26 Year
  Sex: Female
  Weight: 129 kg

DRUGS (5)
  1. METFORMIN [Suspect]
     Active Substance: METFORMIN HYDROCHLORIDE
     Indication: Ill-defined disorder
     Dosage: UNK
     Route: 065
     Dates: start: 20240410
  2. DESOGESTREL [Concomitant]
     Active Substance: DESOGESTREL
     Indication: Ill-defined disorder
     Dosage: 1 TABLET DAILY AT THE SAME TIME EACH DAY
     Route: 065
     Dates: start: 20220906, end: 20240131
  3. METFORMIN [Concomitant]
     Active Substance: METFORMIN HYDROCHLORIDE
     Indication: Ill-defined disorder
     Dosage: 1 TABLET WITH EVENING MEAL
     Route: 065
     Dates: start: 20240215
  4. ORLISTAT [Concomitant]
     Active Substance: ORLISTAT
     Indication: Ill-defined disorder
     Dosage: 1 TABLET EITHER BEFORE, DURING OR UP TO
     Route: 065
     Dates: start: 20240410
  5. SERTRALINE [Concomitant]
     Active Substance: SERTRALINE HYDROCHLORIDE
     Indication: Ill-defined disorder
     Dosage: 1 DAILY QD
     Route: 065
     Dates: start: 20231101, end: 20240131

REACTIONS (2)
  - Vaginal haemorrhage [Recovering/Resolving]
  - Product use in unapproved indication [Unknown]

NARRATIVE: CASE EVENT DATE: 20240410
